FAERS Safety Report 19561536 (Version 3)
Quarter: 2021Q4

REPORT INFORMATION
  Report Type: Report from Study
  Country: US (occurrence: US)
  Receive Date: 20210714
  Receipt Date: 20211206
  Transmission Date: 20220303
  Serious: Yes (Death, Hospitalization, Other)
  Sender: FDA-Public Use
  Company Number: US-PCYC-2019PHC33301

PATIENT
  Age: 75 Year
  Sex: Female
  Weight: 58 kg

DRUGS (15)
  1. IMBRUVICA [Suspect]
     Active Substance: IBRUTINIB
     Indication: Chronic lymphocytic leukaemia
     Dosage: 420 MG, QD
     Route: 048
     Dates: start: 20190428
  2. ZOFRAN                             /00955301/ [Concomitant]
     Indication: Nausea
     Dosage: 8 MG, Q8H PRN
     Route: 048
     Dates: start: 20190426
  3. FLEXERIL                           /00428402/ [Concomitant]
     Indication: Muscle spasms
     Dosage: 10 MG, TID
     Route: 048
     Dates: start: 20190930
  4. ULTRAM                             /00599202/ [Concomitant]
     Indication: Pain
     Dosage: 50 MG, Q6H PRN
     Route: 048
     Dates: start: 20190926
  5. LIPITOR [Concomitant]
     Active Substance: ATORVASTATIN CALCIUM
     Indication: Hyperlipidaemia
     Dosage: 10 MG, QHS
     Route: 048
  6. CHOLECALCIFEROL [Concomitant]
     Active Substance: CHOLECALCIFEROL
     Indication: Routine health maintenance
     Dosage: 1000 UNIT, UNK
     Route: 048
     Dates: start: 20190501
  7. COENZYME Q10 [Concomitant]
     Active Substance: DIETARY SUPPLEMENT\UBIDECARENONE
     Indication: Routine health maintenance
     Dosage: 100 MG, UNK
     Route: 048
     Dates: start: 20190328
  8. VITAMIN B12 [Concomitant]
     Active Substance: CYANOCOBALAMIN
     Indication: Product used for unknown indication
     Dosage: 1000 MCG, UNK
     Route: 048
  9. COLACE [Concomitant]
     Active Substance: DOCUSATE SODIUM
     Indication: Product used for unknown indication
     Dosage: 100 MG, UNK
     Route: 048
  10. FLAGYL                             /00012501/ [Concomitant]
     Indication: Product used for unknown indication
     Dosage: 500 MG, Q8H FOR 28 DAYS
     Route: 048
  11. PRILOSEC                           /00661201/ [Concomitant]
     Indication: Product used for unknown indication
  12. ONDANSETRON [Concomitant]
     Active Substance: ONDANSETRON
     Indication: Nausea
     Dosage: TAKE 1 TAB MY MOUTH EVERY 8 HOURS AS NEEDED
     Route: 048
     Dates: start: 20190426
  13. CYCLOBENZAPRINE [Concomitant]
     Active Substance: CYCLOBENZAPRINE
     Indication: Muscle spasms
     Route: 048
     Dates: start: 20190930
  14. TRAMADOL [Concomitant]
     Active Substance: TRAMADOL
     Indication: Pain
     Route: 048
     Dates: start: 20190926
  15. ATORVASTATIN [Concomitant]
     Active Substance: ATORVASTATIN
     Indication: Hyperlipidaemia
     Route: 048
     Dates: start: 20190328

REACTIONS (4)
  - Death [Fatal]
  - Joint abscess [Recovered/Resolved]
  - Osteomyelitis [Recovered/Resolved]
  - Fatigue [Unknown]

NARRATIVE: CASE EVENT DATE: 20190930
